FAERS Safety Report 15734662 (Version 2)
Quarter: 2019Q1

REPORT INFORMATION
  Report Type: Spontaneous
  Country: US (occurrence: US)
  Receive Date: 20181218
  Receipt Date: 20190130
  Transmission Date: 20190417
  Serious: No
  Sender: FDA-Public Use
  Company Number: US-009507513-1811USA008014

PATIENT
  Age: 20 Year
  Sex: Female
  Weight: 63.49 kg

DRUGS (4)
  1. BETADINE [Concomitant]
     Active Substance: POVIDONE-IODINE
     Dosage: UNK
     Dates: start: 20181119
  2. LIDOCAINE. [Concomitant]
     Active Substance: LIDOCAINE
     Dosage: 3 MILLILITER
     Dates: start: 20181119
  3. NEXPLANON [Suspect]
     Active Substance: ETONOGESTREL
     Indication: CONTRACEPTION
     Dosage: 1 IMPLANT, 68MG, LEFT UPPER MEDIAL EPICONDYLE, ONCE
     Route: 059
     Dates: start: 20181119, end: 20181119
  4. NEXPLANON [Suspect]
     Active Substance: ETONOGESTREL
     Dosage: 1 IMPLANT, RIGHT MEDIAL EPICONDYLE, 3 YEARS
     Route: 059
     Dates: start: 20181119

REACTIONS (3)
  - Complication of device insertion [Recovered/Resolved]
  - No adverse event [Unknown]
  - Device expulsion [Recovered/Resolved]

NARRATIVE: CASE EVENT DATE: 20181119
